FAERS Safety Report 4582453-1 (Version None)
Quarter: 2005Q1

REPORT INFORMATION
  Report Type: 
  Country: None (occurrence: None)
  Receive Date: 20050211
  Receipt Date: 20050211
  Transmission Date: 20050727
  Serious: Yes (Death, Hospitalization, Disabling, Other)
  Sender: FDA-Public Use
  Company Number: None

PATIENT
  Age: 63 Year
  Sex: Female

DRUGS (2)
  1. TAXOL [Suspect]
     Indication: OVARIAN CANCER
  2. PARAPLATIN [Suspect]

REACTIONS (8)
  - ANASTOMOTIC COMPLICATION [None]
  - DEHYDRATION [None]
  - HERNIA [None]
  - MEDICATION ERROR [None]
  - NEOPLASM MALIGNANT [None]
  - OVARIAN CANCER [None]
  - STARVATION [None]
  - WEIGHT DECREASED [None]
